FAERS Safety Report 8579268-6 (Version None)
Quarter: 2012Q3

REPORT INFORMATION
  Report Type: 
  Country: None (occurrence: None)
  Receive Date: 20120731
  Receipt Date: 20120731
  Transmission Date: 20120928
  Serious: Yes (Other)
  Sender: FDA-Public Use
  Company Number: None

PATIENT
  Age: 21 Year
  Sex: Female

DRUGS (1)
  1. LIPITOR [Suspect]
     Indication: BLOOD CHOLESTEROL INCREASED
     Dosage: 20MG TWICE DAILY PO
     Route: 048

REACTIONS (4)
  - FEAR [None]
  - AMNESIA [None]
  - PERSONALITY CHANGE [None]
  - NERVOUSNESS [None]
